FAERS Safety Report 8319889-9 (Version None)
Quarter: 2012Q2

REPORT INFORMATION
  Report Type: 
  Country: None (occurrence: None)
  Receive Date: 20120427
  Receipt Date: 20120413
  Transmission Date: 20120825
  Serious: Yes (Hospitalization, Other)
  Sender: FDA-Public Use
  Company Number: US-ELI_LILLY_AND_COMPANY-US201204006971

PATIENT
  Sex: Female

DRUGS (2)
  1. FORTEO [Suspect]
     Indication: OSTEOPOROSIS
     Dosage: 20 UG, QD
     Route: 065
  2. FORTEO [Suspect]
     Dosage: 20 UG, QD
     Route: 065

REACTIONS (11)
  - POST PROCEDURAL COMPLICATION [None]
  - SPINAL FRACTURE [None]
  - PNEUMONIA [None]
  - VOMITING [None]
  - OBSTRUCTION GASTRIC [None]
  - INFLUENZA LIKE ILLNESS [None]
  - DYSPHONIA [None]
  - PAIN [None]
  - RIB FRACTURE [None]
  - THYROIDECTOMY [None]
  - OESOPHAGEAL DILATION PROCEDURE [None]
